FAERS Safety Report 12544118 (Version 3)
Quarter: 2016Q4

REPORT INFORMATION
  Report Type: Spontaneous
  Country: CZ (occurrence: CZ)
  Receive Date: 20160711
  Receipt Date: 20161219
  Transmission Date: 20170207
  Serious: Yes (Life-Threatening, Hospitalization, Other)
  Sender: FDA-Public Use
  Company Number: CZ-FRESENIUS KABI-FK201604172

PATIENT
  Age: 34 Year
  Sex: Female
  Weight: 51 kg

DRUGS (9)
  1. ATROPIN BIOTIKA [Suspect]
     Active Substance: ATROPINE
     Indication: GENERAL ANAESTHESIA
     Route: 065
     Dates: start: 20160617, end: 20160617
  2. NOVALGIN [Suspect]
     Active Substance: METAMIZOLE SODIUM
     Indication: GENERAL ANAESTHESIA
     Route: 065
     Dates: start: 20160617, end: 20160617
  3. APAURIN [Suspect]
     Active Substance: DIAZEPAM
     Indication: GENERAL ANAESTHESIA
     Route: 065
     Dates: start: 20160617, end: 20160617
  4. PROPOFOL 1% MCT FRESENIUS [Suspect]
     Active Substance: PROPOFOL
     Indication: GENERAL ANAESTHESIA
     Route: 042
     Dates: start: 20160617, end: 20160617
  5. MIDAZOLAM TORREX [Suspect]
     Active Substance: MIDAZOLAM HYDROCHLORIDE
     Indication: GENERAL ANAESTHESIA
     Route: 065
     Dates: start: 20160617, end: 20160617
  6. CHLORID SODNY 0,9% BRAUN [Suspect]
     Active Substance: SODIUM CHLORIDE
     Indication: GENERAL ANAESTHESIA
     Route: 065
     Dates: start: 20160617, end: 20160617
  7. RAPIFEN [Suspect]
     Active Substance: ALFENTANIL HYDROCHLORIDE
     Indication: GENERAL ANAESTHESIA
     Route: 042
     Dates: start: 20160617, end: 20160617
  8. PARALEN 500SUP [Suspect]
     Active Substance: ACETAMINOPHEN
     Indication: GENERAL ANAESTHESIA
     Route: 054
     Dates: start: 20160617, end: 20160617
  9. ARDEAELYTOSOL F 1/1 [Suspect]
     Active Substance: SODIUM CHLORIDE
     Indication: GENERAL ANAESTHESIA
     Route: 065
     Dates: start: 20160617, end: 20160617

REACTIONS (4)
  - Product quality issue [Unknown]
  - Expired product administered [Unknown]
  - Peritoneal haemorrhage [Recovered/Resolved]
  - Disseminated intravascular coagulation [Recovered/Resolved]

NARRATIVE: CASE EVENT DATE: 20160617
